FAERS Safety Report 8042673-0 (Version None)
Quarter: 2012Q1

REPORT INFORMATION
  Report Type: 
  Country: None (occurrence: None)
  Receive Date: 20120112
  Receipt Date: 20120106
  Transmission Date: 20120608
  Serious: Yes (Hospitalization, Disabling, Other)
  Sender: FDA-Public Use
  Company Number: US-MERCK-1012USA03789

PATIENT
  Age: 49 Year
  Sex: Female

DRUGS (2)
  1. FOSAMAX PLUS D [Suspect]
     Indication: OSTEOPENIA
     Route: 048
     Dates: start: 20060401, end: 20100301
  2. FOSAMAX [Suspect]
     Indication: OSTEOPENIA
     Route: 048
     Dates: start: 20060401, end: 20100301

REACTIONS (25)
  - TYPE 2 DIABETES MELLITUS [None]
  - STOMATITIS [None]
  - NECROSIS [None]
  - DYSPNOEA [None]
  - RENAL DISORDER [None]
  - ATELECTASIS [None]
  - OSTEONECROSIS [None]
  - TOOTH LOSS [None]
  - TEMPOROMANDIBULAR JOINT SYNDROME [None]
  - PAIN [None]
  - PULMONARY FIBROSIS [None]
  - ADVERSE EVENT [None]
  - HAEMORRHAGE [None]
  - HYPERTENSION [None]
  - BREAST CANCER [None]
  - TOOTH DISORDER [None]
  - OVARIAN CYST [None]
  - OSTEONECROSIS OF JAW [None]
  - PANCYTOPENIA [None]
  - LYMPHOEDEMA [None]
  - BLOOD CHOLESTEROL INCREASED [None]
  - JAW DISORDER [None]
  - GINGIVAL DISORDER [None]
  - CHEST X-RAY ABNORMAL [None]
  - BONE LOSS [None]
